FAERS Safety Report 11364880 (Version 2)
Quarter: 2015Q3

REPORT INFORMATION
  Report Type: Spontaneous
  Country: FR (occurrence: FR)
  Receive Date: 20150811
  Receipt Date: 20150826
  Transmission Date: 20151125
  Serious: Yes (Hospitalization)
  Sender: FDA-Public Use
  Company Number: FR-PFIZER INC-2015260755

PATIENT
  Age: 83 Year
  Sex: Male

DRUGS (24)
  1. REVITALOSE [Concomitant]
     Dosage: 2 DF, DAILY
     Dates: start: 20150608
  2. LOVENOX [Concomitant]
     Active Substance: ENOXAPARIN SODIUM
     Dosage: 0.6 ML, 2X/DAY
     Dates: start: 20150604
  3. BECILAN [Concomitant]
     Active Substance: PYRIDOXINE
     Dosage: 2 DF, DAILY
     Dates: start: 20150608
  4. RIFATER [Interacting]
     Active Substance: ISONIAZID\PYRAZINAMIDE\RIFAMPIN
     Indication: PULMONARY TUBERCULOSIS
     Dosage: 5 DF, DAILY
     Route: 048
     Dates: start: 20150615
  5. TAZOCILLINE [Concomitant]
     Active Substance: PIPERACILLIN SODIUM\TAZOBACTAM SODIUM
     Dosage: 1 DF (4G/500LG), 3X/DAY
     Route: 048
     Dates: start: 20150615
  6. EFFEXOR [Suspect]
     Active Substance: VENLAFAXINE HYDROCHLORIDE
     Indication: DEPRESSION
     Dosage: 75 MG, 1X/DAY
     Route: 048
     Dates: start: 201502, end: 20150616
  7. PRIMPERAN [Interacting]
     Active Substance: METOCLOPRAMIDE HYDROCHLORIDE
     Indication: NAUSEA
     Dosage: 10 MG, 3X/DAY
     Route: 042
     Dates: start: 20150610, end: 20150616
  8. RIMACTAN /00146901/ [Concomitant]
     Active Substance: RIFAMPIN
     Dosage: 300 MG, 2X/DAY
     Route: 048
     Dates: start: 20150605, end: 20150615
  9. COVERSYL /00790702/ [Concomitant]
     Active Substance: PERINDOPRIL
     Dosage: 1.5 MG, DAILY
     Route: 048
  10. SIMVASTATIN. [Concomitant]
     Active Substance: SIMVASTATIN
     Dosage: 40 MG, 1X/DAY
     Route: 048
  11. DIFFU K [Concomitant]
     Active Substance: POTASSIUM CHLORIDE
     Dosage: 1200 MG, 3X/DAY
     Dates: start: 20150609
  12. CERIS [Concomitant]
     Active Substance: TROSPIUM CHLORIDE
     Indication: URINARY INCONTINENCE
     Dosage: 20 MG, 2X/DAY
     Route: 048
     Dates: start: 20140310, end: 20150616
  13. PLAVIX [Concomitant]
     Active Substance: CLOPIDOGREL BISULFATE
     Dosage: 75 MG, 1X/DAY
     Route: 048
  14. AMIKLIN /00391001/ [Concomitant]
     Active Substance: AMIKACIN SULFATE
     Dosage: 900 MG, SINGLE
     Route: 048
     Dates: start: 20150615, end: 20150615
  15. STILNOX [Concomitant]
     Active Substance: ZOLPIDEM TARTRATE
     Dosage: 10 MG, 1X/DAY
     Route: 048
  16. ETHAMBUTOL [Concomitant]
     Active Substance: ETHAMBUTOL HYDROCHLORIDE
     Dosage: 500 MG, 2X/DAY
     Route: 048
     Dates: start: 20150605
  17. TERBUTALINE [Concomitant]
     Active Substance: TERBUTALINE
     Dosage: 1 DF, 4X/DAY
     Dates: start: 20150608
  18. BEVITINE [Concomitant]
     Active Substance: THIAMINE
     Dosage: 500 MG (250 MG X 2), DAILY
     Dates: start: 20150608
  19. ZALDIAR [Interacting]
     Active Substance: ACETAMINOPHEN\TRAMADOL HYDROCHLORIDE
     Indication: ARTHRALGIA
     Dosage: 1 DF, 2X/DAY
     Route: 048
     Dates: start: 20140310, end: 20150616
  20. CORDARONE [Concomitant]
     Active Substance: AMIODARONE HYDROCHLORIDE
     Dosage: 200 MG, 1X/DAY
     Route: 048
  21. RIMIFON [Concomitant]
     Active Substance: ISONIAZID
     Dosage: 150 MG, 2X/DAY
     Route: 048
     Dates: start: 20150605, end: 20150615
  22. LASILIX /00032601/ [Concomitant]
     Active Substance: FUROSEMIDE
     Dosage: 60 MG, 2X/DAY
     Route: 048
     Dates: start: 20150615
  23. MOVICOL [Concomitant]
     Active Substance: POLYETHYLENE GLYCOL 3350\POTASSIUM CHLORIDE\SODIUM BICARBONATE\SODIUM CHLORIDE
     Dosage: 2 DF, DAILY
     Route: 048
  24. SOPROL [Concomitant]
     Dosage: 10 MG, 1X/DAY
     Route: 048

REACTIONS (11)
  - Respiratory failure [Unknown]
  - Drug interaction [Recovered/Resolved]
  - Hypoxia [Unknown]
  - Malnutrition [Unknown]
  - Nervous system disorder [Unknown]
  - Hypocalcaemia [Unknown]
  - Seizure [Recovered/Resolved]
  - Pulmonary tuberculosis [Unknown]
  - Ischaemic stroke [Unknown]
  - Confusional state [Unknown]
  - Pneumonia [Unknown]

NARRATIVE: CASE EVENT DATE: 201506
